FAERS Safety Report 4987531-0 (Version None)
Quarter: 2006Q2

REPORT INFORMATION
  Report Type: 
  Country: None (occurrence: None)
  Receive Date: 20060501
  Receipt Date: 20060321
  Transmission Date: 20061013
  Serious: Yes (Death, Hospitalization)
  Sender: FDA-Public Use
  Company Number: US-MERCK-0603USA03368

PATIENT
  Age: 72 Year
  Sex: Female
  Weight: 75 kg

DRUGS (14)
  1. VIOXX [Suspect]
     Indication: ARTHRITIS
     Route: 048
     Dates: start: 20010101
  2. VIOXX [Suspect]
     Route: 048
     Dates: start: 20020501
  3. SYNTHROID [Concomitant]
     Indication: HYPOTHYROIDISM
     Route: 048
  4. DURATUSS [Concomitant]
     Route: 065
  5. NASACORT [Concomitant]
     Route: 065
  6. TENORMIN [Concomitant]
     Indication: HYPERTENSION
     Route: 048
  7. PROCARDIA XL [Concomitant]
     Indication: HYPERTENSION
     Route: 048
  8. LASIX [Concomitant]
     Indication: HYPERTENSION
     Route: 048
  9. POTASSIUM CHLORIDE [Concomitant]
     Indication: HYPERTENSION
     Route: 048
  10. VICODIN [Concomitant]
     Indication: PROCEDURAL PAIN
     Route: 048
  11. ALLOPURINOL [Concomitant]
     Route: 048
  12. PREMARIN [Concomitant]
     Route: 048
  13. CALCIUM (UNSPECIFIED) [Concomitant]
     Route: 048
  14. VITAMIN D (UNSPECIFIED) [Concomitant]
     Route: 048

REACTIONS (2)
  - ACUTE MYOCARDIAL INFARCTION [None]
  - KNEE ARTHROPLASTY [None]
